FAERS Safety Report 9048682 (Version 1)
Quarter: 2013Q1

REPORT INFORMATION
  Report Type: Spontaneous
  Country: US (occurrence: None)
  Receive Date: 20130130
  Receipt Date: 20130130
  Transmission Date: 20140127
  Serious: Yes (Other)
  Sender: FDA-Public Use
  Company Number: None

PATIENT
  Age: 67 Year
  Sex: Female
  Weight: 68.95 kg

DRUGS (1)
  1. SIMVASTATIN [Suspect]
     Indication: BLOOD CHOLESTEROL INCREASED
     Dosage: 1 PER DAY
     Route: 048
     Dates: start: 20100315, end: 20121220

REACTIONS (15)
  - Judgement impaired [None]
  - Impaired driving ability [None]
  - Road traffic accident [None]
  - Fatigue [None]
  - Disturbance in attention [None]
  - Activities of daily living impaired [None]
  - Decreased activity [None]
  - Irritability [None]
  - Impatience [None]
  - Lip blister [None]
  - Decreased interest [None]
  - Arthralgia [None]
  - Dizziness [None]
  - Confusional state [None]
  - Mental impairment [None]
